FAERS Safety Report 8538925-8 (Version None)
Quarter: 2012Q3

REPORT INFORMATION
  Report Type: 
  Country: None (occurrence: None)
  Receive Date: 20120713
  Receipt Date: 20120702
  Transmission Date: 20120928
  Serious: No
  Sender: FDA-Public Use
  Company Number: 2012P1048111

PATIENT

DRUGS (1)
  1. HEPARIN [Suspect]
     Dosage: 25,000 IU, X1

REACTIONS (2)
  - INCORRECT DOSE ADMINISTERED [None]
  - DEVICE COMPUTER ISSUE [None]
